FAERS Safety Report 8224406-8 (Version None)
Quarter: 2012Q1

REPORT INFORMATION
  Report Type: 
  Country: None (occurrence: None)
  Receive Date: 20120321
  Receipt Date: 20120313
  Transmission Date: 20120608
  Serious: Yes (Death, Disabling)
  Sender: FDA-Public Use
  Company Number: US-BAYER-US-2007-023287

PATIENT
  Age: 20 Year
  Sex: Male
  Weight: 48.6 kg

DRUGS (15)
  1. MAGNEVIST [Suspect]
     Indication: NUCLEAR MAGNETIC RESONANCE IMAGING BRAIN
     Dates: start: 20060121, end: 20060121
  2. ENOXAPARIN [Concomitant]
  3. LABETALOL HCL [Concomitant]
  4. NORVASC [Concomitant]
  5. OMNISCAN [Suspect]
     Indication: ANGIOGRAM
     Dosage: 30 ML, ONCE
     Dates: start: 20050602, end: 20050602
  6. DANTROLENE SODIUM [Concomitant]
  7. NEPHROVITE [VIT C,VIT H,B5,B12,B9,B3,B6,B2,B1 HCL] [Concomitant]
  8. CLONIDINE HCL [Concomitant]
  9. DARBEPOETIN ALFA [Concomitant]
  10. HYDRALAZINE HCL [Concomitant]
  11. OMNISCAN [Suspect]
  12. FLUOXETINE [Concomitant]
     Dosage: 20 MG, QD
  13. CEFAZOLIN [Concomitant]
  14. RENAGEL [Concomitant]
  15. COUMADIN [Concomitant]

REACTIONS (21)
  - SKIN TIGHTNESS [None]
  - ABASIA [None]
  - ANXIETY [None]
  - JOINT WARMTH [None]
  - JOINT EFFUSION [None]
  - ASTHENIA [None]
  - JOINT RANGE OF MOTION DECREASED [None]
  - SKIN EXFOLIATION [None]
  - EXTREMITY CONTRACTURE [None]
  - HYPERTROPHY [None]
  - NEPHROGENIC SYSTEMIC FIBROSIS [None]
  - DRY SKIN [None]
  - PAIN [None]
  - OEDEMA PERIPHERAL [None]
  - JOINT CONTRACTURE [None]
  - EMOTIONAL DISTRESS [None]
  - MOBILITY DECREASED [None]
  - DEPRESSION [None]
  - OEDEMA [None]
  - PAIN IN EXTREMITY [None]
  - CACHEXIA [None]
